FAERS Safety Report 9863901 (Version 1)
Quarter: 2014Q1

REPORT INFORMATION
  Report Type: Spontaneous
  Country: GB (occurrence: GB)
  Receive Date: 20140203
  Receipt Date: 20140203
  Transmission Date: 20141002
  Serious: Yes (Other)
  Sender: FDA-Public Use
  Company Number: PHFR2014GB001132

PATIENT
  Sex: Female

DRUGS (1)
  1. NILOTINIB [Suspect]
     Dosage: 300 MG, BID

REACTIONS (1)
  - Hepatic fibrosis [Unknown]
